FAERS Safety Report 13093350 (Version 2)
Quarter: 2018Q2

REPORT INFORMATION
  Report Type: Spontaneous
  Country: RU (occurrence: RU)
  Receive Date: 20170106
  Receipt Date: 20180404
  Transmission Date: 20180711
  Serious: Yes (Hospitalization)
  Sender: FDA-Public Use
  Company Number: RU-ASTRAZENECA-2017SE00154

PATIENT
  Age: 71 Year
  Sex: Male
  Weight: 90 kg

DRUGS (7)
  1. BETALOC [Concomitant]
     Active Substance: METOPROLOL TARTRATE
  2. ASPIRIN CARDIO [Concomitant]
     Active Substance: ASPIRIN
  3. OMEPRAZOLE. [Concomitant]
     Active Substance: OMEPRAZOLE
  4. TRIMETAZIDINE [Concomitant]
     Active Substance: TRIMETAZIDINE
  5. GLIFORMIN [Concomitant]
  6. BRILINTA [Suspect]
     Active Substance: TICAGRELOR
     Indication: MYOCARDIAL INFARCTION
     Route: 048
     Dates: start: 201605, end: 201710
  7. ATORVASTATIN [Concomitant]
     Active Substance: ATORVASTATIN

REACTIONS (3)
  - Off label use [Unknown]
  - Product use issue [Unknown]
  - Arrhythmia [Not Recovered/Not Resolved]

NARRATIVE: CASE EVENT DATE: 201612
